FAERS Safety Report 6432808-5 (Version None)
Quarter: 2009Q4

REPORT INFORMATION
  Report Type: 
  Country: None (occurrence: None)
  Receive Date: 20091109
  Receipt Date: 20091029
  Transmission Date: 20100525
  Serious: Yes (Other)
  Sender: FDA-Public Use
  Company Number: A0815466A

PATIENT
  Age: 41 Year
  Sex: Female

DRUGS (2)
  1. TYKERB [Suspect]
     Dosage: 1250MG PER DAY
     Route: 048
     Dates: start: 20080522
  2. CAPECITABINE [Suspect]
     Indication: BRAIN CANCER METASTATIC
     Dates: start: 20080522

REACTIONS (8)
  - ALOPECIA [None]
  - BLISTER [None]
  - DIARRHOEA [None]
  - NAIL DISORDER [None]
  - PALMAR-PLANTAR ERYTHRODYSAESTHESIA SYNDROME [None]
  - PIGMENTATION DISORDER [None]
  - RASH [None]
  - SKIN EXFOLIATION [None]
